FAERS Safety Report 22161176 (Version 1)
Quarter: 2023Q1

REPORT INFORMATION
  Report Type: Report from Study
  Country: DE (occurrence: DE)
  Receive Date: 20230331
  Receipt Date: 20230331
  Transmission Date: 20230418
  Serious: Yes (Hospitalization)
  Sender: FDA-Public Use
  Company Number: DE-JNJFOC-20230367045

PATIENT
  Age: 7 Decade
  Sex: Male
  Weight: 92.6 kg

DRUGS (1)
  1. BORTEZOMIB [Suspect]
     Active Substance: BORTEZOMIB
     Indication: Plasma cell myeloma
     Dosage: 1.3 MILLIGRAM/SQ. METER
     Route: 058
     Dates: start: 20210202

REACTIONS (1)
  - Varicella zoster virus infection [Recovered/Resolved]

NARRATIVE: CASE EVENT DATE: 20210827
